FAERS Safety Report 21355271 (Version 1)
Quarter: 2022Q3

REPORT INFORMATION
  Report Type: Spontaneous
  Country: JP (occurrence: JP)
  Receive Date: 20220920
  Receipt Date: 20220920
  Transmission Date: 20221027
  Serious: Yes (Hospitalization)
  Sender: FDA-Public Use
  Company Number: JP-TEVA-2022-JP-2074753

PATIENT
  Age: 66 Year
  Sex: Female

DRUGS (12)
  1. CARBOPLATIN [Suspect]
     Active Substance: CARBOPLATIN
     Indication: Pulmonary tumour thrombotic microangiopathy
     Dosage: AUC5
     Route: 065
  2. CARBOPLATIN [Suspect]
     Active Substance: CARBOPLATIN
     Indication: Cervix carcinoma
  3. CARBOPLATIN [Suspect]
     Active Substance: CARBOPLATIN
     Indication: Uterine cancer
  4. PREDNISOLONE [Suspect]
     Active Substance: PREDNISOLONE
     Indication: Respiratory failure
     Dosage: 40 MILLIGRAM DAILY; 0.5 MG/KG
     Route: 065
  5. METHYLPREDNISOLONE [Suspect]
     Active Substance: METHYLPREDNISOLONE
     Indication: Respiratory failure
     Dosage: 1000 MG
     Route: 065
  6. TACROLIMUS [Suspect]
     Active Substance: TACROLIMUS
     Indication: Respiratory failure
     Route: 065
  7. PACLITAXEL [Suspect]
     Active Substance: PACLITAXEL
     Indication: Pulmonary tumour thrombotic microangiopathy
     Dosage: 175 MG.M2 ONCE IN 3 WEEKS
     Route: 065
  8. PACLITAXEL [Suspect]
     Active Substance: PACLITAXEL
     Indication: Cervix carcinoma
  9. PACLITAXEL [Suspect]
     Active Substance: PACLITAXEL
     Indication: Uterine cancer
  10. BEVACIZUMAB [Suspect]
     Active Substance: BEVACIZUMAB
     Indication: Pulmonary tumour thrombotic microangiopathy
     Dosage: 15 MG/KG ONCE IN 3 WEEKS
     Route: 065
  11. BEVACIZUMAB [Suspect]
     Active Substance: BEVACIZUMAB
     Indication: Cervix carcinoma
  12. BEVACIZUMAB [Suspect]
     Active Substance: BEVACIZUMAB
     Indication: Uterine cancer

REACTIONS (2)
  - Epistaxis [Unknown]
  - Drug ineffective [Unknown]
